FAERS Safety Report 4576730-8 (Version None)
Quarter: 2005Q1

REPORT INFORMATION
  Report Type: 
  Country: None (occurrence: None)
  Receive Date: 20050207
  Receipt Date: 20050126
  Transmission Date: 20050727
  Serious: Yes (Hospitalization)
  Sender: FDA-Public Use
  Company Number: 2004238432US

PATIENT
  Age: 59 Year
  Sex: Female
  Weight: 56.6996 kg

DRUGS (3)
  1. CLINDAMYCIN PHOSPHATE [Suspect]
     Indication: PROPHYLAXIS
     Dosage: SINGLE, INTRAVENOUS
     Route: 042
     Dates: start: 20040826, end: 20040826
  2. FENTANYL [Concomitant]
  3. MIDAZOLAM HCL [Concomitant]

REACTIONS (4)
  - BRUXISM [None]
  - POST PROCEDURAL COMPLICATION [None]
  - TREMOR [None]
  - TRISMUS [None]
